FAERS Safety Report 15655613 (Version 1)
Quarter: 2018Q4

REPORT INFORMATION
  Report Type: Spontaneous
  Country: US (occurrence: US)
  Receive Date: 20181125
  Receipt Date: 20181125
  Transmission Date: 20190205
  Serious: Yes (Other)
  Sender: FDA-Public Use
  Company Number: None

PATIENT
  Age: 24 Year
  Sex: Female
  Weight: 108 kg

DRUGS (8)
  1. PROPRANOLOL [Concomitant]
     Active Substance: PROPRANOLOL HYDROCHLORIDE
  2. LORAZEPAM. [Concomitant]
     Active Substance: LORAZEPAM
  3. VIIBRYD [Suspect]
     Active Substance: VILAZODONE HYDROCHLORIDE
     Indication: DEPRESSION
     Dosage: ?          QUANTITY:1 TABLET(S);?
     Route: 048
     Dates: start: 20181012, end: 20181112
  4. NEXIUM [Concomitant]
     Active Substance: ESOMEPRAZOLE MAGNESIUM
  5. DAILY WOMEN^S MULTIVITAMIN [Concomitant]
  6. DAILY HAIR SKIN AN NAILS VITAMIN [Concomitant]
  7. IBUPROFEN. [Concomitant]
     Active Substance: IBUPROFEN
  8. VIIBRYD [Suspect]
     Active Substance: VILAZODONE HYDROCHLORIDE
     Indication: DEPRESSION
     Dosage: ?          QUANTITY:1 TABLET(S);?
     Route: 048
     Dates: start: 20181005, end: 20181011

REACTIONS (4)
  - Tinnitus [None]
  - Dizziness [None]
  - Deafness [None]
  - Somnolence [None]

NARRATIVE: CASE EVENT DATE: 20181008
